FAERS Safety Report 7204407-9 (Version None)
Quarter: 2010Q4

REPORT INFORMATION
  Report Type: 
  Country: None (occurrence: None)
  Receive Date: 20101230
  Receipt Date: 20101221
  Transmission Date: 20110411
  Serious: Yes (Other)
  Sender: FDA-Public Use
  Company Number: US-JNJCH-2010029587

PATIENT
  Age: 54 Year
  Sex: Female
  Weight: 61.2 kg

DRUGS (2)
  1. MULTI-SYMPTOM ROLAIDS PLUS ANTI-GAS SOFTCHEWS FRUIT [Suspect]
     Indication: DYSPEPSIA
     Dosage: TEXT:ONE CHEWABLE TWO OR THREE TIMES
     Route: 048
     Dates: start: 20101101, end: 20101201
  2. MULTIVITAMIN [Concomitant]
     Indication: VITAMIN SUPPLEMENTATION
     Dosage: TEXT:UNKNOWN
     Route: 065

REACTIONS (5)
  - DYSKINESIA [None]
  - INFLAMMATION [None]
  - JAW DISORDER [None]
  - PAIN IN JAW [None]
  - PRODUCT QUALITY ISSUE [None]
